FAERS Safety Report 18191860 (Version 2)
Quarter: 2020Q3

REPORT INFORMATION
  Report Type: Spontaneous
  Country: SA (occurrence: SA)
  Receive Date: 20200825
  Receipt Date: 20200909
  Transmission Date: 20201103
  Serious: Yes (Hospitalization)
  Sender: FDA-Public Use
  Company Number: NVSC2020SA233238

PATIENT
  Age: 46 Year
  Sex: Female

DRUGS (8)
  1. FULVESTRANT. [Suspect]
     Active Substance: FULVESTRANT
     Indication: BREAST CANCER
  2. RIBOCICLIB. [Suspect]
     Active Substance: RIBOCICLIB
     Indication: RADIOTHERAPY
     Dosage: 600 MG, QD FOR 21 DAYS AND THEN WEEK OFF
     Route: 065
  3. RIBOCICLIB. [Suspect]
     Active Substance: RIBOCICLIB
     Indication: BREAST CANCER
     Dosage: 200 MG, QD
     Route: 065
  4. HEPARIN [Concomitant]
     Active Substance: HEPARIN SODIUM
     Indication: PRODUCT USED FOR UNKNOWN INDICATION
     Dosage: UNK
     Route: 065
  5. METHYLPREDNISOLONE. [Concomitant]
     Active Substance: METHYLPREDNISOLONE
     Indication: PRODUCT USED FOR UNKNOWN INDICATION
     Dosage: 1.5 MG/KG, QD
     Route: 065
  6. ZOLADEX [Suspect]
     Active Substance: GOSERELIN ACETATE
     Indication: BREAST CANCER
  7. ZOLADEX [Suspect]
     Active Substance: GOSERELIN ACETATE
     Indication: RADIOTHERAPY
     Dosage: 3.6 MG
     Route: 058
  8. FULVESTRANT. [Suspect]
     Active Substance: FULVESTRANT
     Indication: RADIOTHERAPY
     Dosage: 500 MG DAY 1 AND 14 THEN EVERY OTHER DAY
     Route: 030

REACTIONS (7)
  - Respiratory distress [Unknown]
  - Thrombocytopenia [Unknown]
  - Neutropenia [Unknown]
  - Pneumonitis [Recovered/Resolved]
  - Chest pain [Unknown]
  - Mucosal inflammation [Recovered/Resolved]
  - Dyspnoea [Unknown]
